FAERS Safety Report 5669853-3 (Version None)
Quarter: 2008Q1

REPORT INFORMATION
  Report Type: 
  Country: None (occurrence: None)
  Receive Date: 20080317
  Receipt Date: 20080306
  Transmission Date: 20080703
  Serious: Yes (Other)
  Sender: FDA-Public Use
  Company Number: FR-PFIZER INC-2007107598

PATIENT
  Sex: Male
  Weight: 80 kg

DRUGS (9)
  1. LYRICA [Suspect]
     Indication: NEURALGIA
  2. PROPOFAN [Concomitant]
     Indication: SCIATICA
     Route: 048
  3. GLICLAZIDE [Concomitant]
     Indication: DIABETES MELLITUS
     Route: 048
  4. METFORMIN HCL [Concomitant]
     Indication: DIABETES MELLITUS
     Route: 048
  5. COZAAR [Concomitant]
     Indication: HYPERTENSION
     Route: 048
  6. INDAPAMIDE [Concomitant]
     Indication: HYPERTENSION
     Route: 048
  7. BUFLOMEDIL [Concomitant]
     Indication: ARTHRITIS
     Route: 048
  8. JOSIR [Concomitant]
     Indication: PROSTATIC ADENOMA
     Route: 048
  9. PAROXETINE [Concomitant]
     Indication: DEPRESSION
     Route: 048

REACTIONS (2)
  - DYSSTASIA [None]
  - VERTIGO [None]
